FAERS Safety Report 11876582 (Version 3)
Quarter: 2020Q4

REPORT INFORMATION
  Report Type: Spontaneous
  Country: FR (occurrence: FR)
  Receive Date: 20151229
  Receipt Date: 20201015
  Transmission Date: 20210113
  Serious: Yes (Hospitalization, Other)
  Sender: FDA-Public Use
  Company Number: FR-UCBSA-2015042483

PATIENT
  Age: 0 Year
  Sex: Male
  Weight: 3 kg

DRUGS (14)
  1. CLAIRYG [Suspect]
     Active Substance: HUMAN IMMUNOGLOBULIN G
     Dosage: UNK
     Route: 064
     Dates: start: 20151129, end: 201511
  2. COLCHICINE. [Concomitant]
     Active Substance: COLCHICINE
     Indication: PRODUCT USED FOR UNKNOWN INDICATION
     Dosage: UNK
     Route: 064
     Dates: start: 2015, end: 20151117
  3. KINERET [Suspect]
     Active Substance: ANAKINRA
     Indication: PRODUCT USED FOR UNKNOWN INDICATION
     Dosage: UNK
     Route: 064
     Dates: end: 20151008
  4. KINERET [Suspect]
     Active Substance: ANAKINRA
     Dosage: UNK
     Route: 064
     Dates: start: 2015, end: 20151104
  5. ACICLOVIR [Concomitant]
     Active Substance: ACYCLOVIR
     Indication: PROPHYLAXIS AGAINST HIV INFECTION
     Route: 064
  6. COLCHICINE. [Concomitant]
     Active Substance: COLCHICINE
     Dosage: UNK
     Route: 064
     Dates: start: 20151128, end: 201511
  7. ETANERCEPT [Concomitant]
     Active Substance: ETANERCEPT
     Indication: PRODUCT USED FOR UNKNOWN INDICATION
     Route: 064
  8. ROACTEMRA [Suspect]
     Active Substance: TOCILIZUMAB
     Indication: PRODUCT USED FOR UNKNOWN INDICATION
     Dosage: UNK
     Route: 064
     Dates: start: 20151012, end: 20151109
  9. CIMZIA [Suspect]
     Active Substance: CERTOLIZUMAB PEGOL
     Indication: PRODUCT USED FOR UNKNOWN INDICATION
     Dosage: UNK
     Route: 064
     Dates: start: 20151118, end: 201511
  10. PREDNISONE. [Suspect]
     Active Substance: PREDNISONE
     Dosage: 500 MG
     Route: 064
     Dates: start: 20151128, end: 201511
  11. CLAIRYG [Suspect]
     Active Substance: HUMAN IMMUNOGLOBULIN G
     Indication: PRODUCT USED FOR UNKNOWN INDICATION
     Dosage: UNK
     Route: 064
     Dates: start: 20151128, end: 20151128
  12. PREDNISONE. [Suspect]
     Active Substance: PREDNISONE
     Indication: PRODUCT USED FOR UNKNOWN INDICATION
     Dosage: DOSE: 500 MG
     Route: 064
     Dates: start: 2015, end: 20151117
  13. PERFALGAN [Suspect]
     Active Substance: ACETAMINOPHEN
     Indication: PRODUCT USED FOR UNKNOWN INDICATION
     Dosage: UNK
     Route: 064
     Dates: start: 20151129, end: 201511
  14. UN-ALFA [Concomitant]
     Active Substance: ALFACALCIDOL
     Indication: HYPOCALCAEMIA
     Route: 064

REACTIONS (10)
  - Thrombocytopenia [Recovering/Resolving]
  - Hypocalcaemia [Recovered/Resolved]
  - Maternal exposure during pregnancy [Unknown]
  - Gastrointestinal disorder [Recovering/Resolving]
  - Pyrexia [Recovering/Resolving]
  - Premature baby [Unknown]
  - Bradycardia foetal [Recovered/Resolved]
  - Neonatal infection [Unknown]
  - Hepatosplenomegaly [Recovering/Resolving]
  - No adverse event [Unknown]

NARRATIVE: CASE EVENT DATE: 2015
